FAERS Safety Report 11924175 (Version 1)
Quarter: 2016Q1

REPORT INFORMATION
  Report Type: Spontaneous
  Country: FI (occurrence: FI)
  Receive Date: 20160118
  Receipt Date: 20160118
  Transmission Date: 20160526
  Serious: Yes (Life-Threatening)
  Sender: FDA-Public Use
  Company Number: FI-BAYER-2015-465755

PATIENT
  Age: 74 Year
  Sex: Female

DRUGS (3)
  1. NEXAVAR [Suspect]
     Active Substance: SORAFENIB
     Indication: FOLLICULAR THYROID CANCER
     Dosage: DAILY DOSE 400 MG (200 MG X2)
     Route: 048
     Dates: start: 20151001, end: 20151110
  2. BISOPROLOL [Concomitant]
     Active Substance: BISOPROLOL
     Indication: ATRIAL FIBRILLATION
     Dosage: DAILY DOSE 5 MG
     Dates: start: 201409
  3. MAREVAN [Concomitant]
     Active Substance: WARFARIN SODIUM
     Indication: ATRIAL FIBRILLATION
     Dosage: UNK
     Dates: start: 201411

REACTIONS (4)
  - Dysgeusia [None]
  - Decreased appetite [None]
  - Acute myocardial infarction [Recovering/Resolving]
  - Dry mouth [None]

NARRATIVE: CASE EVENT DATE: 20151108
